FAERS Safety Report 8701557 (Version 2)
Quarter: 2013Q4

REPORT INFORMATION
  Report Type: Spontaneous
  Country: US (occurrence: US)
  Receive Date: 20120803
  Receipt Date: 20131031
  Transmission Date: 20140711
  Serious: Yes (Other)
  Sender: FDA-Public Use
  Company Number: US-009507513-2012SP023453

PATIENT
  Age: 56 Year
  Sex: Male
  Weight: 107.5 kg

DRUGS (4)
  1. VICTRELIS [Suspect]
     Indication: PRODUCT USED FOR UNKNOWN INDICATION
     Dosage: 800 MG, TID
  2. PEGINTRON [Suspect]
     Indication: PRODUCT USED FOR UNKNOWN INDICATION
     Dosage: 150 MICROGRAM, QW
     Route: 058
  3. REBETOL [Suspect]
     Dosage: 600 MG, BID
     Route: 048
  4. CHLORDIAZEPOXIDE HYDROCHLORIDE [Concomitant]

REACTIONS (7)
  - Erectile dysfunction [Unknown]
  - Injection site rash [Unknown]
  - Anorectal disorder [Unknown]
  - Injection site pruritus [Unknown]
  - Eczema [Unknown]
  - Product substitution issue [Unknown]
  - Product quality issue [Unknown]
